FAERS Safety Report 12090979 (Version 1)
Quarter: 2016Q1

REPORT INFORMATION
  Report Type: Spontaneous
  Country: US (occurrence: US)
  Receive Date: 20160218
  Receipt Date: 20160218
  Transmission Date: 20160526
  Serious: No
  Sender: FDA-Public Use
  Company Number: ALCN2016US001366

PATIENT
  Age: 56 Year
  Sex: Female

DRUGS (3)
  1. DUREZOL [Suspect]
     Active Substance: DIFLUPREDNATE
     Indication: POSTOPERATIVE CARE
     Dosage: 1 GTT, QID
     Route: 047
     Dates: start: 20160202, end: 20160210
  2. DUREZOL [Suspect]
     Active Substance: DIFLUPREDNATE
     Indication: EYE INFLAMMATION
  3. DUREZOL [Suspect]
     Active Substance: DIFLUPREDNATE
     Indication: EYE PAIN
     Dosage: 1 GTT, QID
     Route: 047
     Dates: start: 20160212

REACTIONS (2)
  - Headache [Not Recovered/Not Resolved]
  - Rhinorrhoea [Not Recovered/Not Resolved]

NARRATIVE: CASE EVENT DATE: 20160204
